FAERS Safety Report 11132160 (Version 1)
Quarter: 2015Q2

REPORT INFORMATION
  Report Type: Spontaneous
  Country: US (occurrence: US)
  Receive Date: 20150522
  Receipt Date: 20150522
  Transmission Date: 20150821
  Serious: No
  Sender: FDA-Public Use
  Company Number: US-MALLINCKRODT-T201501640

PATIENT
  Sex: Male

DRUGS (1)
  1. H.P. ACTHAR [Suspect]
     Active Substance: CORTICOTROPIN
     Indication: IGA NEPHROPATHY
     Dosage: 80 UNITS, TWICE WKLY
     Route: 030
     Dates: start: 20150102

REACTIONS (2)
  - Skin bacterial infection [Unknown]
  - Fatigue [Unknown]
